FAERS Safety Report 23298747 (Version 2)
Quarter: 2024Q1

REPORT INFORMATION
  Report Type: Spontaneous
  Country: AR (occurrence: AR)
  Receive Date: 20231214
  Receipt Date: 20240122
  Transmission Date: 20240409
  Serious: No
  Sender: FDA-Public Use
  Company Number: AR-TOLMAR, INC.-23AR045022

PATIENT

DRUGS (5)
  1. ELIGARD [Suspect]
     Active Substance: LEUPROLIDE ACETATE
     Indication: Product used for unknown indication
     Dosage: 45 MILLIGRAM
     Dates: start: 20231122
  2. ELIGARD [Suspect]
     Active Substance: LEUPROLIDE ACETATE
     Dosage: 45 MILLIGRAM
  3. ELIGARD [Suspect]
     Active Substance: LEUPROLIDE ACETATE
     Dosage: 45 MILLIGRAM
  4. ELIGARD [Suspect]
     Active Substance: LEUPROLIDE ACETATE
     Dosage: 45 MILLIGRAM
  5. DEVICE [Suspect]
     Active Substance: DEVICE
     Indication: Product used for unknown indication
     Dosage: UNK

REACTIONS (5)
  - Wrong technique in product usage process [Unknown]
  - Intercepted product preparation error [Unknown]
  - Product physical consistency issue [Unknown]
  - Product colour issue [Unknown]
  - Product packaging quantity issue [Unknown]

NARRATIVE: CASE EVENT DATE: 20231122
